FAERS Safety Report 21955063 (Version 1)
Quarter: 2023Q1

REPORT INFORMATION
  Report Type: Spontaneous
  Country: US (occurrence: US)
  Receive Date: 20230206
  Receipt Date: 20230206
  Transmission Date: 20230418
  Serious: No
  Sender: FDA-Public Use
  Company Number: US-009507513-2301USA010411

PATIENT
  Age: 78 Year
  Sex: Male

DRUGS (2)
  1. BELSOMRA [Suspect]
     Active Substance: SUVOREXANT
     Dosage: 5 MG
     Route: 048
     Dates: start: 202212, end: 202212
  2. BELSOMRA [Suspect]
     Active Substance: SUVOREXANT
     Dosage: 10 MG
     Route: 048
     Dates: start: 202212

REACTIONS (2)
  - Amnesia [Unknown]
  - Psychotic disorder [Unknown]

NARRATIVE: CASE EVENT DATE: 20221201
